FAERS Safety Report 8901851 (Version 1)
Quarter: 2012Q4

REPORT INFORMATION
  Report Type: Spontaneous
  Country: US (occurrence: None)
  Receive Date: 20121109
  Receipt Date: 20121109
  Transmission Date: 20130627
  Serious: No
  Sender: FDA-Public Use
  Company Number: None

PATIENT
  Age: 65 Year
  Sex: Female
  Weight: 137.89 kg

DRUGS (1)
  1. DEXFERRUM [Suspect]
     Dosage: 25mg once IV Drip
     Route: 041

REACTIONS (3)
  - Back pain [None]
  - Pain in extremity [None]
  - Fatigue [None]
